FAERS Safety Report 8834200 (Version 1)
Quarter: 2012Q4

REPORT INFORMATION
  Report Type: 
  Country: BR (occurrence: BR)
  Receive Date: 20121010
  Receipt Date: 20121010
  Transmission Date: 20130627
  Serious: Yes (Hospitalization)
  Sender: FDA-Public Use
  Company Number: BR-ASTRAZENECA-2012SE76239

PATIENT
  Age: 70 Year
  Sex: Male

DRUGS (5)
  1. ATACAND [Suspect]
     Indication: HYPERTENSION
     Route: 048
     Dates: start: 2011, end: 201204
  2. ATACAND [Suspect]
     Indication: HYPERTENSION
     Route: 048
     Dates: start: 201207
  3. PRADAXA [Concomitant]
     Route: 048
  4. CARDIZEM [Concomitant]
     Route: 048
  5. CARDILOL [Concomitant]
     Route: 048

REACTIONS (4)
  - Anxiety [Recovered/Resolved]
  - Hyperthyroidism [Recovered/Resolved]
  - Blood pressure inadequately controlled [Unknown]
  - Drug ineffective [Unknown]
